FAERS Safety Report 15264084 (Version 2)
Quarter: 2018Q3

REPORT INFORMATION
  Report Type: Spontaneous
  Country: US (occurrence: US)
  Receive Date: 20180810
  Receipt Date: 20180924
  Transmission Date: 20181010
  Serious: No
  Sender: FDA-Public Use
  Company Number: US-JNJFOC-20180738781

PATIENT
  Sex: Male

DRUGS (2)
  1. HALDOL [Suspect]
     Active Substance: HALOPERIDOL
     Indication: PRODUCT USED FOR UNKNOWN INDICATION
     Route: 048
  2. HALDOL [Suspect]
     Active Substance: HALOPERIDOL
     Indication: PRODUCT USED FOR UNKNOWN INDICATION
     Route: 030

REACTIONS (11)
  - Incorrect dose administered [Unknown]
  - Regurgitation [Unknown]
  - Drug dose omission [Unknown]
  - Treatment noncompliance [Unknown]
  - Drug intolerance [Unknown]
  - Tension [Unknown]
  - Nausea [Unknown]
  - Adverse event [Unknown]
  - Fear [Unknown]
  - Therapeutic response increased [Unknown]
  - Drug ineffective [Unknown]
